FAERS Safety Report 9357086 (Version 1)
Quarter: 2013Q2

REPORT INFORMATION
  Report Type: Spontaneous
  Country: DE (occurrence: DE)
  Receive Date: 20130620
  Receipt Date: 20130620
  Transmission Date: 20140414
  Serious: Yes (Hospitalization)
  Sender: FDA-Public Use
  Company Number: DE-BIOGENIDEC-2013BI053269

PATIENT
  Age: 32 Year
  Sex: Female
  Weight: 105 kg

DRUGS (1)
  1. AVONEX [Suspect]
     Indication: MULTIPLE SCLEROSIS
     Route: 030
     Dates: start: 20060101

REACTIONS (5)
  - Chills [Recovered/Resolved]
  - Cholelithiasis [Recovered/Resolved]
  - Umbilical hernia [Recovered/Resolved]
  - Gastritis [Recovered/Resolved]
  - Multiple sclerosis relapse [Recovered/Resolved]
